FAERS Safety Report 24426594 (Version 2)
Quarter: 2024Q4

REPORT INFORMATION
  Report Type: Report from Study
  Country: KR (occurrence: KR)
  Receive Date: 20241011
  Receipt Date: 20241015
  Transmission Date: 20250115
  Serious: Yes (Hospitalization)
  Sender: AMNEAL
  Company Number: KR-AMNEAL PHARMACEUTICALS-2022-AMRX-04448

PATIENT

DRUGS (4)
  1. ONGENTYS [Suspect]
     Active Substance: OPICAPONE
     Indication: Parkinson^s disease
     Dosage: 50 MILLIGRAM, 1 /DAY
     Route: 048
     Dates: start: 20220817, end: 20220825
  2. PERKIN 25-100 [Concomitant]
     Indication: Parkinsonism
     Dosage: 150 MILLIGRAM, DAILY
     Route: 048
     Dates: start: 20220817, end: 20220825
  3. BENSERAZIDE\LEVODOPA [Concomitant]
     Active Substance: BENSERAZIDE\LEVODOPA
     Indication: Parkinsonism
     Dosage: 1.5 DOSAGE FORM, 4 /DAY
     Route: 048
     Dates: start: 20220420, end: 20220816
  4. BENSERAZIDE\LEVODOPA [Concomitant]
     Active Substance: BENSERAZIDE\LEVODOPA
     Dosage: 2 DOSAGE FORM, 4 /DAY
     Route: 048
     Dates: start: 20220826

REACTIONS (2)
  - Nausea [Recovered/Resolved]
  - Vomiting [Recovered/Resolved]

NARRATIVE: CASE EVENT DATE: 20220818
